FAERS Safety Report 7153107-2 (Version None)
Quarter: 2010Q4

REPORT INFORMATION
  Report Type: 
  Country: None (occurrence: None)
  Receive Date: 20101213
  Receipt Date: 20101129
  Transmission Date: 20110411
  Serious: Yes (Other)
  Sender: FDA-Public Use
  Company Number: PHHY2010MX81083

PATIENT
  Sex: Male

DRUGS (1)
  1. EXFORGE [Suspect]
     Indication: HYPERTENSION
     Dosage: 1 TABLET (320/10 MG) DAILY
     Route: 048
     Dates: start: 20101030

REACTIONS (5)
  - ABDOMINAL DISCOMFORT [None]
  - COUGH [None]
  - DYSPEPSIA [None]
  - GASTRITIS [None]
  - INTESTINAL OBSTRUCTION [None]
